FAERS Safety Report 4515989-X (Version None)
Quarter: 2004Q4

REPORT INFORMATION
  Report Type: 
  Country: None (occurrence: None)
  Receive Date: 20041201
  Receipt Date: 20041108
  Transmission Date: 20050328
  Serious: Yes (Hospitalization)
  Sender: FDA-Public Use
  Company Number: M2004.1772

PATIENT
  Age: 67 Year
  Sex: Male

DRUGS (1)
  1. AMOXICILLIN [Suspect]
     Indication: DENTAL DISORDER PROPHYLAXIS
     Dosage: 1 G DAILY

REACTIONS (11)
  - ABDOMINAL PAIN UPPER [None]
  - ANAPHYLACTIC REACTION [None]
  - ANTIBODY TEST POSITIVE [None]
  - COLITIS ISCHAEMIC [None]
  - COLONOSCOPY ABNORMAL [None]
  - LOSS OF CONSCIOUSNESS [None]
  - NECROSIS [None]
  - PETECHIAE [None]
  - RECTAL HAEMORRHAGE [None]
  - SKIN TEST POSITIVE [None]
  - ULCER [None]
